FAERS Safety Report 6102304-3 (Version None)
Quarter: 2009Q1

REPORT INFORMATION
  Report Type: 
  Country: None (occurrence: None)
  Receive Date: 20090304
  Receipt Date: 20090227
  Transmission Date: 20090719
  Serious: Yes (Hospitalization, Other)
  Sender: FDA-Public Use
  Company Number: AT-AVENTIS-200910971EU

PATIENT
  Age: 48 Year
  Sex: Female

DRUGS (7)
  1. ENOXAPARIN SODIUM [Suspect]
     Indication: PULMONARY EMBOLISM
     Route: 058
     Dates: start: 20090202, end: 20090203
  2. ENOXAPARIN SODIUM [Suspect]
     Dosage: DOSE: UNK
     Route: 058
     Dates: start: 20090204, end: 20090204
  3. ENOXAPARIN SODIUM [Suspect]
     Route: 058
     Dates: start: 20090205, end: 20090208
  4. WARFARIN SODIUM [Suspect]
     Indication: PULMONARY EMBOLISM
     Dosage: DOSE: 1.5 DF
     Route: 048
     Dates: start: 20090204, end: 20090204
  5. WARFARIN SODIUM [Suspect]
     Dosage: DOSE: 1DF
     Route: 048
     Dates: start: 20090205, end: 20090205
  6. WARFARIN SODIUM [Suspect]
     Dosage: DOSE: 0.5DF
     Route: 048
     Dates: start: 20090206, end: 20090208
  7. AUGMENTIN '125' [Concomitant]
     Indication: C-REACTIVE PROTEIN INCREASED
     Dates: start: 20090131, end: 20090209

REACTIONS (2)
  - LIVER FUNCTION TEST ABNORMAL [None]
  - MENORRHAGIA [None]
